FAERS Safety Report 7405828-1 (Version None)
Quarter: 2011Q2

REPORT INFORMATION
  Report Type: 
  Country: None (occurrence: None)
  Receive Date: 20110411
  Receipt Date: 20110404
  Transmission Date: 20111010
  Serious: Yes (Life-Threatening, Hospitalization)
  Sender: FDA-Public Use
  Company Number: FR-ROCHE-769950

PATIENT
  Sex: Male
  Weight: 50 kg

DRUGS (4)
  1. VALIUM [Suspect]
     Route: 048
     Dates: start: 20110221, end: 20110222
  2. DEPAMIDE [Suspect]
     Route: 048
  3. RISPERDAL [Suspect]
     Route: 048
     Dates: start: 20100101
  4. TERCIAN [Suspect]
     Route: 048
     Dates: start: 20110221, end: 20110222

REACTIONS (3)
  - SOMNOLENCE [None]
  - BRADYCARDIA [None]
  - MALAISE [None]
